FAERS Safety Report 17742362 (Version 2)
Quarter: 2020Q2

REPORT INFORMATION
  Report Type: Spontaneous
  Country: CN (occurrence: CN)
  Receive Date: 20200504
  Receipt Date: 20200504
  Transmission Date: 20200714
  Serious: Yes (Other)
  Sender: FDA-Public Use
  Company Number: CN-009507513-2004CHN008072

PATIENT
  Age: 42 Year
  Sex: Female
  Weight: 44 kg

DRUGS (4)
  1. TIENAM [Suspect]
     Active Substance: CILASTATIN SODIUM\IMIPENEM
     Indication: ANTI-INFECTIVE THERAPY
  2. TIENAM [Suspect]
     Active Substance: CILASTATIN SODIUM\IMIPENEM
     Indication: FEBRILE INFECTION
     Dosage: 0.5 GRAM, Q6H, IVGTT
     Route: 041
     Dates: start: 20200412, end: 20200419
  3. SODIUM CHLORIDE. [Concomitant]
     Active Substance: SODIUM CHLORIDE
     Dosage: 100 MILLILITER, INDICATION REPORTED AS SOLVENT
     Dates: start: 20200412
  4. LIDOCAINE HYDROCHLORIDE. [Concomitant]
     Active Substance: LIDOCAINE HYDROCHLORIDE
     Indication: LOCAL ANAESTHESIA
     Dosage: 0.1 GRAM
     Dates: start: 20200418

REACTIONS (2)
  - Dermatitis allergic [Recovered/Resolved]
  - Aspiration bone marrow [Recovering/Resolving]

NARRATIVE: CASE EVENT DATE: 20200418
